FAERS Safety Report 10792544 (Version 2)
Quarter: 2015Q2

REPORT INFORMATION
  Report Type: Spontaneous
  Country: BR (occurrence: BR)
  Receive Date: 20150213
  Receipt Date: 20150416
  Transmission Date: 20150821
  Serious: Yes (Hospitalization, Other)
  Sender: FDA-Public Use
  Company Number: BR-ASTRAZENECA-2013SE20707

PATIENT
  Age: 724 Month
  Sex: Male
  Weight: 72 kg

DRUGS (6)
  1. SYMBICORT [Suspect]
     Active Substance: BUDESONIDE\FORMOTEROL FUMARATE DIHYDRATE
     Indication: ASTHMA
     Dosage: FREQUENCY UNKNOWN
     Route: 055
     Dates: start: 20130326
  2. DUOVENT [Concomitant]
     Active Substance: FENOTEROL HYDROBROMIDE
     Indication: ASTHMA
  3. UNSPECIFIED MEDICATION [Concomitant]
     Active Substance: UNSPECIFIED INGREDIENT
  4. SYMBICORT [Suspect]
     Active Substance: BUDESONIDE\FORMOTEROL FUMARATE DIHYDRATE
     Indication: ASTHMA
     Dosage: 320/9 MCG, TWO TIMES A DAY
     Route: 055
     Dates: start: 2008, end: 2014
  5. NAPRIX D [Concomitant]
     Indication: HYPERTENSION
     Dosage: DAILY
     Dates: start: 2008
  6. SYMBICORT [Suspect]
     Active Substance: BUDESONIDE\FORMOTEROL FUMARATE DIHYDRATE
     Indication: ASTHMA
     Dosage: VANNAIR 160/4.5 MCG 2 INHALATIONS BID
     Route: 055
     Dates: start: 2014

REACTIONS (4)
  - Oesophageal carcinoma [Recovered/Resolved]
  - Lung infiltration [Recovered/Resolved]
  - Wheezing [Recovered/Resolved]
  - Blood uric acid increased [Recovered/Resolved]

NARRATIVE: CASE EVENT DATE: 201302
